FAERS Safety Report 9360401 (Version 2)
Quarter: 2013Q4

REPORT INFORMATION
  Report Type: Spontaneous
  Country: US (occurrence: US)
  Receive Date: 20130621
  Receipt Date: 20131022
  Transmission Date: 20140711
  Serious: Yes (Hospitalization)
  Sender: FDA-Public Use
  Company Number: US-BAYER-2013-072806

PATIENT
  Age: 53 Year
  Sex: Female
  Weight: 124.26 kg

DRUGS (3)
  1. MIRENA [Suspect]
     Indication: CONTRACEPTION
     Dosage: 20 MCG/24HR, CONT
     Route: 015
     Dates: start: 20070404, end: 20130227
  2. ALLEGRA [Concomitant]
     Dosage: UNK
     Route: 048
     Dates: start: 1999
  3. FLONASE [Concomitant]
     Dosage: 1 SPRAY IN EACH NOSTRILS 2 TIMES A DAY
     Route: 045

REACTIONS (5)
  - Uterine perforation [None]
  - Injury [None]
  - Pain [None]
  - Device misuse [None]
  - Emotional distress [None]
